FAERS Safety Report 4995052-4 (Version None)
Quarter: 2006Q2

REPORT INFORMATION
  Report Type: 
  Country: None (occurrence: None)
  Receive Date: 20060508
  Receipt Date: 20060427
  Transmission Date: 20061013
  Serious: Yes (Life-Threatening, Hospitalization, Disabling, Other)
  Sender: FDA-Public Use
  Company Number: IL-GLAXOSMITHKLINE-B0422713A

PATIENT
  Age: 65 Year
  Sex: Male

DRUGS (2)
  1. AUGMENTIN '125' [Suspect]
     Indication: INFECTION PROPHYLAXIS
     Route: 048
     Dates: start: 20051118, end: 20051125
  2. NAROCIN [Suspect]
     Indication: DRUG USE FOR UNKNOWN INDICATION
     Dosage: 275MG AS REQUIRED
     Route: 065

REACTIONS (13)
  - ANAEMIA [None]
  - DIABETES MELLITUS NON-INSULIN-DEPENDENT [None]
  - HEPATIC ENZYME INCREASED [None]
  - HYPERCHOLESTEROLAEMIA [None]
  - HYPERKALAEMIA [None]
  - HYPERTENSION [None]
  - HYPOGLYCAEMIA [None]
  - LACTIC ACIDOSIS [None]
  - LISTLESS [None]
  - OEDEMA [None]
  - PALLOR [None]
  - RENAL FAILURE [None]
  - VOMITING [None]
